FAERS Safety Report 12178041 (Version 1)
Quarter: 2016Q1

REPORT INFORMATION
  Report Type: Report from Study
  Country: GB (occurrence: GB)
  Receive Date: 20160314
  Receipt Date: 20160314
  Transmission Date: 20160526
  Serious: Yes (Other)
  Sender: FDA-Public Use
  Company Number: GB-GILEAD-2016-0202094

PATIENT
  Age: 64 Year
  Sex: Male

DRUGS (3)
  1. RITUXIMAB [Concomitant]
     Active Substance: RITUXIMAB
  2. IDELALISIB [Suspect]
     Active Substance: IDELALISIB
     Indication: CHRONIC LYMPHOCYTIC LEUKAEMIA
     Dosage: 150 MG, BID
     Route: 048
  3. IDELALISIB [Suspect]
     Active Substance: IDELALISIB
     Indication: CHROMOSOMAL DELETION

REACTIONS (1)
  - Leukocytosis [Unknown]
